FAERS Safety Report 6601158-6 (Version None)
Quarter: 2010Q1

REPORT INFORMATION
  Report Type: 
  Country: None (occurrence: None)
  Receive Date: 20100225
  Receipt Date: 20100218
  Transmission Date: 20100710
  Serious: Yes (Other)
  Sender: FDA-Public Use
  Company Number: US-JNJFOC-20091106365

PATIENT
  Sex: Female
  Weight: 59.88 kg

DRUGS (11)
  1. REMICADE [Suspect]
     Indication: CROHN'S DISEASE
     Route: 042
     Dates: start: 20081201, end: 20091230
  2. REMICADE [Suspect]
     Route: 042
     Dates: start: 20081201, end: 20091230
  3. REMICADE [Suspect]
     Route: 042
     Dates: start: 20081201, end: 20091230
  4. REMICADE [Suspect]
     Route: 042
     Dates: start: 20081201, end: 20091230
  5. REMICADE [Suspect]
     Route: 042
     Dates: start: 20081201, end: 20091230
  6. REMICADE [Suspect]
     Dosage: DOSE ^4 VIALS^
     Route: 042
     Dates: start: 20081201, end: 20091230
  7. REMICADE [Suspect]
     Dosage: DOSE ^4 VIALS^
     Route: 042
     Dates: start: 20081201, end: 20091230
  8. REMICADE [Suspect]
     Route: 042
     Dates: start: 20081201, end: 20091230
  9. REMICADE [Suspect]
     Route: 042
     Dates: start: 20081201, end: 20091230
  10. AZATHIOPRINE [Concomitant]
     Indication: CROHN'S DISEASE
  11. PREDNISONE [Concomitant]
     Indication: CROHN'S DISEASE

REACTIONS (1)
  - CYTOMEGALOVIRUS GASTROINTESTINAL INFECTION [None]
